FAERS Safety Report 5532271-2 (Version None)
Quarter: 2007Q4

REPORT INFORMATION
  Report Type: 
  Country: None (occurrence: None)
  Receive Date: 20071130
  Receipt Date: 20071130
  Transmission Date: 20080405
  Serious: Yes (Hospitalization)
  Sender: FDA-Public Use
  Company Number: None

PATIENT
  Age: 75 Year
  Sex: Male

DRUGS (9)
  1. CETUXIMAB [Suspect]
     Indication: LUNG NEOPLASM MALIGNANT
     Dosage: 435 MG WEEKLY IV
     Route: 042
     Dates: start: 20070919, end: 20071128
  2. FLOMAX [Concomitant]
  3. ZANTAC [Concomitant]
  4. LEXAPRO [Concomitant]
  5. SPIRIVA [Concomitant]
  6. ALBUTEROL [Concomitant]
  7. XANAX [Concomitant]
  8. VICODIN [Concomitant]
  9. MEGACE [Concomitant]

REACTIONS (2)
  - DYSPNOEA [None]
  - HYPOXIA [None]
